FAERS Safety Report 8054836-9 (Version None)
Quarter: 2012Q1

REPORT INFORMATION
  Report Type: 
  Country: None (occurrence: None)
  Receive Date: 20120112
  Receipt Date: 20111229
  Transmission Date: 20120608
  Serious: Yes (Hospitalization)
  Sender: FDA-Public Use
  Company Number: 2012PT0008

PATIENT
  Age: 12 Year
  Sex: Male
  Weight: 55.7 kg

DRUGS (1)
  1. ORFADIN [Suspect]
     Indication: TYROSINAEMIA

REACTIONS (6)
  - LIVER TRANSPLANT [None]
  - RENAL TUBULAR DISORDER [None]
  - RENAL FAILURE [None]
  - COMPLICATIONS OF TRANSPLANTED LIVER [None]
  - METASTATIC CHORIOCARCINOMA [None]
  - HEPATIC NEOPLASM MALIGNANT [None]
